FAERS Safety Report 5295648-9 (Version None)
Quarter: 2007Q2

REPORT INFORMATION
  Report Type: 
  Country: None (occurrence: None)
  Receive Date: 20070410
  Receipt Date: 20070410
  Transmission Date: 20071010
  Serious: Yes (Other)
  Sender: FDA-Public Use
  Company Number: None

PATIENT
  Age: 48 Year
  Sex: Female
  Weight: 79.3795 kg

DRUGS (2)
  1. LEVAQUIN [Suspect]
     Indication: BRONCHITIS
     Dosage: 750 MG 1 TABLET PER DAY PO
     Route: 048
     Dates: start: 20070312, end: 20070326
  2. METHYL-PREDNISONOL [Concomitant]

REACTIONS (1)
  - PAIN IN EXTREMITY [None]
